FAERS Safety Report 24842784 (Version 1)
Quarter: 2025Q1

REPORT INFORMATION
  Report Type: Spontaneous
  Country: US (occurrence: US)
  Receive Date: 20250115
  Receipt Date: 20250115
  Transmission Date: 20250409
  Serious: No
  Sender: BIOGEN
  Company Number: US-BIOGEN-2019BI00718707

PATIENT
  Sex: Female

DRUGS (2)
  1. TECFIDERA [Suspect]
     Active Substance: DIMETHYL FUMARATE
     Indication: Multiple sclerosis
     Route: 050
     Dates: start: 20130725, end: 20130813
  2. TECFIDERA [Suspect]
     Active Substance: DIMETHYL FUMARATE
     Route: 050
     Dates: start: 20190419, end: 20191014

REACTIONS (5)
  - Hiatus hernia [Not Recovered/Not Resolved]
  - Feeling abnormal [Unknown]
  - Gastrooesophageal reflux disease [Recovered/Resolved]
  - Gastrointestinal disorder [Recovered/Resolved]
  - Flushing [Recovered/Resolved]
